FAERS Safety Report 7118227-7 (Version None)
Quarter: 2010Q4

REPORT INFORMATION
  Report Type: 
  Country: None (occurrence: None)
  Receive Date: 20101123
  Receipt Date: 20100923
  Transmission Date: 20110411
  Serious: Yes (Other)
  Sender: FDA-Public Use
  Company Number: US-MYLANLABS-2010S1017741

PATIENT
  Sex: Female

DRUGS (8)
  1. LEVETIRACETAM [Suspect]
     Indication: CONVULSION
     Route: 048
     Dates: start: 20070101, end: 20070101
  2. WARFARIN [Concomitant]
     Indication: CARDIAC DISORDER
  3. SIMVASTATIN [Concomitant]
     Indication: BLOOD CHOLESTEROL INCREASED
  4. LASIX [Concomitant]
     Indication: FLUID RETENTION
  5. SYNTHROID [Concomitant]
     Indication: HYPOTHYROIDISM
  6. FOLIC ACID [Concomitant]
  7. KLOR-CON [Concomitant]
  8. GABAPENTIN [Concomitant]

REACTIONS (2)
  - CONVULSION [None]
  - DRUG INEFFECTIVE [None]
